FAERS Safety Report 8910019 (Version 4)
Quarter: 2014Q1

REPORT INFORMATION
  Report Type: Spontaneous
  Country: US (occurrence: US)
  Receive Date: 20121114
  Receipt Date: 20140102
  Transmission Date: 20141002
  Serious: Yes (Hospitalization, Disabling, Other)
  Sender: FDA-Public Use
  Company Number: US-009507513-1203USA00025

PATIENT
  Sex: Female
  Weight: 57.6 kg

DRUGS (11)
  1. FOSAMAX [Suspect]
     Indication: OSTEOPENIA
     Dosage: 10 MG, QD
     Route: 048
     Dates: start: 1999, end: 200110
  2. FOSAMAX [Suspect]
     Indication: OSTEOPOROSIS PROPHYLAXIS
     Dosage: 70 MG, QW
     Route: 048
     Dates: start: 200110, end: 200809
  3. ALENDRONATE SODIUM [Suspect]
     Indication: OSTEOPENIA
     Dosage: 70 MG, QW
     Route: 048
     Dates: start: 200809, end: 201005
  4. ALENDRONATE SODIUM [Suspect]
     Indication: OSTEOPOROSIS PROPHYLAXIS
  5. EVISTA [Suspect]
     Indication: PRODUCT USED FOR UNKNOWN INDICATION
     Dosage: UNK
     Dates: start: 1997, end: 2008
  6. ASCORBIC ACID [Concomitant]
     Indication: VITAMIN SUPPLEMENTATION
     Dosage: 500 MG, UNK
     Dates: start: 2002
  7. CALTRATE (CALCIUM CARBONATE (+) CHOLECALCIFEROL) [Concomitant]
     Indication: MINERAL SUPPLEMENTATION
     Dosage: 600 MG, UNK
     Dates: start: 2002
  8. CENTRUM SILVER [Concomitant]
     Indication: VITAMIN SUPPLEMENTATION
     Dosage: 1 DF, QD
     Dates: start: 2002
  9. DIGOXIN [Concomitant]
     Indication: CARDIAC MURMUR
     Dosage: UNK
     Dates: start: 1967
  10. CALCIUM (UNSPECIFIED) [Concomitant]
     Indication: OSTEOPENIA
  11. VITAMIN D (UNSPECIFIED) [Concomitant]
     Indication: OSTEOPENIA

REACTIONS (27)
  - Intramedullary rod insertion [Recovered/Resolved]
  - Hysterectomy [Unknown]
  - Salpingo-oophorectomy bilateral [Unknown]
  - Biopsy breast [Unknown]
  - Femur fracture [Recovered/Resolved]
  - Femur fracture [Recovered/Resolved]
  - Impaired healing [Unknown]
  - Foot fracture [Unknown]
  - Diverticulitis [Unknown]
  - Tooth extraction [Unknown]
  - Road traffic accident [Unknown]
  - Ligament sprain [Unknown]
  - Radiculitis lumbosacral [Unknown]
  - Ligament sprain [Unknown]
  - Spinal osteoarthritis [Unknown]
  - Spondylolisthesis [Unknown]
  - Osteoporosis [Unknown]
  - Muscle strain [Unknown]
  - Bone lesion [Unknown]
  - Skeletal injury [Unknown]
  - Lymphadenopathy [Unknown]
  - Arthritis [Unknown]
  - Pneumonia [Unknown]
  - Ligament sprain [Recovering/Resolving]
  - Exostosis [Unknown]
  - Blood potassium decreased [Unknown]
  - Treatment failure [Unknown]
